FAERS Safety Report 20832048 (Version 1)
Quarter: 2022Q2

REPORT INFORMATION
  Report Type: 
  Country: None (occurrence: None)
  Receive Date: 20220516
  Receipt Date: 20220516
  Transmission Date: 20220721
  Serious: No
  Sender: FDA-Public Use
  Company Number: CN-ROCHE-3094279

PATIENT
  Weight: 47 kg

DRUGS (3)
  1. CAPECITABINE [Suspect]
     Active Substance: CAPECITABINE
     Dates: start: 20220411
  2. CAPECITABINE [Suspect]
     Active Substance: CAPECITABINE
     Dates: start: 20220411
  3. TRASTUZUMAB [Suspect]
     Active Substance: TRASTUZUMAB
     Dates: start: 20220411

REACTIONS (3)
  - Palmar-plantar erythrodysaesthesia syndrome [None]
  - Mouth ulceration [None]
  - Myelosuppression [None]

NARRATIVE: CASE EVENT DATE: 20220427
